FAERS Safety Report 7444519-8 (Version None)
Quarter: 2011Q2

REPORT INFORMATION
  Report Type: 
  Country: None (occurrence: None)
  Receive Date: 20110427
  Receipt Date: 20110427
  Transmission Date: 20111010
  Serious: Yes (Disabling)
  Sender: FDA-Public Use
  Company Number: None

PATIENT

DRUGS (1)
  1. CRESTOR [Suspect]
     Indication: BLOOD CHOLESTEROL INCREASED
     Dosage: 1 5MG DAILY 9-20-10 TO 11-24-10 ONE HALF EVERY OTHER DAY 3-10-11
     Dates: start: 20100920, end: 20101124

REACTIONS (3)
  - MUSCULAR WEAKNESS [None]
  - TOOTH DISCOLOURATION [None]
  - ARTHROPATHY [None]
